FAERS Safety Report 9148364 (Version 1)
Quarter: 2013Q1

REPORT INFORMATION
  Report Type: Spontaneous
  Country: US (occurrence: US)
  Receive Date: 20130308
  Receipt Date: 20130308
  Transmission Date: 20140127
  Serious: Yes (Other)
  Sender: FDA-Public Use
  Company Number: US-TEVA-390237USA

PATIENT
  Sex: Male

DRUGS (2)
  1. PROAIR HFA [Suspect]
     Route: 055
  2. QVAR [Suspect]
     Route: 055

REACTIONS (1)
  - Type 2 diabetes mellitus [Not Recovered/Not Resolved]
